FAERS Safety Report 9051283 (Version 1)
Quarter: 2013Q1

REPORT INFORMATION
  Report Type: Spontaneous
  Country: DE (occurrence: DE)
  Receive Date: 20130206
  Receipt Date: 20130206
  Transmission Date: 20140127
  Serious: Yes (Other)
  Sender: FDA-Public Use
  Company Number: DE-AMGEN-DEUSP2013008092

PATIENT
  Age: 80 Year
  Sex: Female

DRUGS (3)
  1. ENBREL [Suspect]
     Indication: RHEUMATOID ARTHRITIS
     Dosage: UNK
     Dates: start: 20121225
  2. CORTISONE [Concomitant]
     Dosage: UNK UNK, UNK
  3. MTX [Concomitant]
     Dosage: UNK UNK, UNK

REACTIONS (1)
  - Rheumatoid arthritis [Unknown]
